FAERS Safety Report 4761327-7 (Version None)
Quarter: 2005Q3

REPORT INFORMATION
  Report Type: 
  Country: None (occurrence: None)
  Receive Date: 20050901
  Receipt Date: 20050901
  Transmission Date: 20060218
  Serious: Yes (Other)
  Sender: FDA-Public Use
  Company Number: None

PATIENT
  Age: 35 Year
  Sex: Female
  Weight: 63.5036 kg

DRUGS (1)
  1. COMPAZINE [Suspect]
     Indication: MIGRAINE
     Dosage: 10 MG IV X 1 DOSE
     Route: 042
     Dates: start: 20050519

REACTIONS (2)
  - ANXIETY [None]
  - PARANOIA [None]
